FAERS Safety Report 5368001-7 (Version None)
Quarter: 2007Q2

REPORT INFORMATION
  Report Type: 
  Country: None (occurrence: None)
  Receive Date: 20070622
  Receipt Date: 20070611
  Transmission Date: 20071010
  Serious: Yes (Other)
  Sender: FDA-Public Use
  Company Number: US-PFIZER INC-2007048034

PATIENT
  Age: 67 Year
  Sex: Male

DRUGS (4)
  1. XANAX [Suspect]
     Route: 048
  2. LUNESTA [Suspect]
     Indication: INSOMNIA
     Dosage: DAILY DOSE:3MG
     Route: 048
     Dates: start: 20070318, end: 20070101
  3. ALTACE [Concomitant]
  4. HYDROCHLOROTHIAZIDE [Concomitant]

REACTIONS (4)
  - INJURY [None]
  - MIDDLE INSOMNIA [None]
  - PARASOMNIA [None]
  - ROAD TRAFFIC ACCIDENT [None]
